FAERS Safety Report 13458017 (Version 1)
Quarter: 2017Q2

REPORT INFORMATION
  Report Type: Spontaneous
  Country: US (occurrence: US)
  Receive Date: 20170419
  Receipt Date: 20170419
  Transmission Date: 20170830
  Serious: No
  Sender: FDA-Public Use
  Company Number: US-SUN PHARMACEUTICAL INDUSTRIES LTD-2016US-122419

PATIENT
  Sex: Female
  Weight: 70.31 kg

DRUGS (6)
  1. ONDANSETRON [Concomitant]
     Active Substance: ONDANSETRON
     Indication: NAUSEA
     Dosage: 1 DF, BID
     Route: 048
     Dates: start: 2014
  2. BABY ASPIRIN [Concomitant]
     Active Substance: ASPIRIN
     Indication: PRODUCT USED FOR UNKNOWN INDICATION
     Dosage: 825 MG OR 325 MG
     Route: 065
  3. METHYLPHENIDATE. [Suspect]
     Active Substance: METHYLPHENIDATE
     Indication: ASTHENIA
     Dosage: 1 DF, BID
     Route: 048
     Dates: start: 201605, end: 2016
  4. VITAMIN D3 [Concomitant]
     Active Substance: CHOLECALCIFEROL
     Indication: PRODUCT USED FOR UNKNOWN INDICATION
     Dosage: UNK
     Route: 065
  5. XALKORI [Concomitant]
     Active Substance: CRIZOTINIB
     Indication: LUNG NEOPLASM MALIGNANT
     Dosage: 1 DF, BID
     Route: 048
     Dates: start: 2014
  6. METHYLPHENIDATE. [Suspect]
     Active Substance: METHYLPHENIDATE
     Indication: ASTHENIA
     Dosage: 3 DF IN MORNING AND 2DF IN EVENING
     Route: 048
     Dates: start: 2016

REACTIONS (5)
  - Therapeutic response decreased [Unknown]
  - Feeling hot [Unknown]
  - Pain [Not Recovered/Not Resolved]
  - Pruritus [Not Recovered/Not Resolved]
  - Scab [Unknown]

NARRATIVE: CASE EVENT DATE: 2016
